FAERS Safety Report 7348821-X (Version None)
Quarter: 2011Q1

REPORT INFORMATION
  Report Type: 
  Country: None (occurrence: None)
  Receive Date: 20110314
  Receipt Date: 20100928
  Transmission Date: 20110831
  Serious: Yes (Hospitalization, Other)
  Sender: FDA-Public Use
  Company Number: US-BAYER-201011749NA

PATIENT
  Sex: Female
  Weight: 79.819 kg

DRUGS (2)
  1. OCELLA [Suspect]
     Indication: MENSTRUAL CYCLE MANAGEMENT
     Dosage: 1 DF, QD
     Dates: start: 20030101, end: 20090101
  2. YAZ [Suspect]
     Indication: MENSTRUAL CYCLE MANAGEMENT
     Dosage: 1 DF, QD
     Dates: start: 20030101, end: 20090101

REACTIONS (1)
  - DEEP VEIN THROMBOSIS [None]
